FAERS Safety Report 5582548-X (Version None)
Quarter: 2007Q4

REPORT INFORMATION
  Report Type: 
  Country: None (occurrence: None)
  Receive Date: 20071130
  Receipt Date: 20070307
  Transmission Date: 20080405
  Serious: Yes (Hospitalization)
  Sender: FDA-Public Use
  Company Number: WAES 0703USA01039

PATIENT
  Age: 63 Year
  Sex: Female

DRUGS (3)
  1. FOSAMAX [Suspect]
     Dosage: 70 MG/WKY/PO
     Route: 048
     Dates: start: 20060701, end: 20070228
  2. METFORMIN HCL [Concomitant]
  3. POTASSIUM CHLORIDE [Concomitant]

REACTIONS (1)
  - OSTEONECROSIS [None]
